FAERS Safety Report 6708507-9 (Version None)
Quarter: 2010Q2

REPORT INFORMATION
  Report Type: 
  Country: None (occurrence: None)
  Receive Date: 20100503
  Receipt Date: 20090814
  Transmission Date: 20101027
  Serious: No
  Sender: FDA-Public Use
  Company Number: US-ASTRAZENECA-2009SE08110

PATIENT
  Age: 17240 Day
  Sex: Female
  Weight: 82.6 kg

DRUGS (4)
  1. NEXIUM [Suspect]
     Indication: GASTROOESOPHAGEAL REFLUX DISEASE
     Route: 065
     Dates: start: 20090807, end: 20090809
  2. IMURAN [Concomitant]
     Indication: ECZEMA
  3. ULTRAM [Concomitant]
     Indication: PAIN
  4. ATARAX [Concomitant]
     Indication: PRURITUS

REACTIONS (3)
  - DIZZINESS [None]
  - FEELING ABNORMAL [None]
  - HEADACHE [None]
